FAERS Safety Report 4807161-0 (Version None)
Quarter: 2005Q4

REPORT INFORMATION
  Report Type: 
  Country: None (occurrence: None)
  Receive Date: 20051024
  Receipt Date: 20051017
  Transmission Date: 20060501
  Serious: Yes (Death, Hospitalization)
  Sender: FDA-Public Use
  Company Number: PHHO2005BR16516

PATIENT
  Age: 43 Year
  Sex: Female

DRUGS (1)
  1. ZELMAC / HTF 919A [Suspect]
     Dosage: 6 MG, UNK
     Route: 048

REACTIONS (8)
  - CARDIAC ARREST [None]
  - CARDIOMYOPATHY [None]
  - HEART RATE ABNORMAL [None]
  - HYPERTENSION [None]
  - HYPOTENSION [None]
  - NERVOUSNESS [None]
  - RENAL FAILURE CHRONIC [None]
  - SYNCOPE [None]
